FAERS Safety Report 8465215 (Version 6)
Quarter: 2013Q4

REPORT INFORMATION
  Report Type: Spontaneous
  Country: US (occurrence: US)
  Receive Date: 20120319
  Receipt Date: 20131202
  Transmission Date: 20140711
  Serious: Yes (Other)
  Sender: FDA-Public Use
  Company Number: US-PFIZER INC-2012068700

PATIENT
  Age: 68 Year
  Sex: Female
  Weight: 55.78 kg

DRUGS (5)
  1. LYRICA [Suspect]
     Indication: PAIN
     Dosage: 150 MG, 2X/DAY
     Dates: end: 2013
  2. LYRICA [Suspect]
     Indication: FIBROMYALGIA
  3. TRAMADOL [Concomitant]
     Indication: ARTHRITIS
     Dosage: 150 MG, 4X/DAY
  4. HYDROCODONE W/ACETAMINOPHEN [Concomitant]
     Indication: HAEMORRHOIDS
     Dosage: HYDROCODONE 10 MG/ACETAMINOPHEN 325 MG, 1X/DAY
  5. HYDROCODONE W/ACETAMINOPHEN [Concomitant]
     Indication: PAIN

REACTIONS (15)
  - Oesophageal carcinoma [Unknown]
  - Neoplasm malignant [Unknown]
  - Parkinson^s disease [Unknown]
  - Lung disorder [Unknown]
  - Pain [Unknown]
  - Toothache [Unknown]
  - Malaise [Unknown]
  - Drug effect incomplete [Unknown]
  - Drug withdrawal syndrome [Recovered/Resolved]
  - Influenza like illness [Recovered/Resolved]
  - Stress [Recovered/Resolved]
  - Intentional drug misuse [Unknown]
  - Generalised anxiety disorder [Unknown]
  - Anxiety [Unknown]
  - Somatisation disorder [Unknown]
